FAERS Safety Report 26096182 (Version 1)
Quarter: 2025Q4

REPORT INFORMATION
  Report Type: Spontaneous
  Country: US (occurrence: US)
  Receive Date: 20251127
  Receipt Date: 20251127
  Transmission Date: 20260118
  Serious: No
  Sender: ACCORD
  Company Number: US-COHERUS BIOSCIENCES, INC-2024-COH-US000748

PATIENT
  Age: 64 Year
  Sex: Male

DRUGS (3)
  1. UDENYCA [Suspect]
     Active Substance: PEGFILGRASTIM-CBQV
     Indication: Prophylaxis
     Dosage: STRENGTH: 6 MG/0.6ML
     Route: 058
     Dates: start: 20240718
  2. CARBOPLATIN [Concomitant]
     Active Substance: CARBOPLATIN
     Dosage: UNK
     Dates: start: 20240604
  3. ETOPOSIDE [Concomitant]
     Active Substance: ETOPOSIDE
     Dosage: UNK
     Dates: start: 20240604

REACTIONS (5)
  - Neutrophil count decreased [Unknown]
  - Product dose omission issue [Unknown]
  - Device malfunction [Unknown]
  - Device malfunction [Unknown]
  - Product dose omission issue [Unknown]

NARRATIVE: CASE EVENT DATE: 20240718
